FAERS Safety Report 8346624-0 (Version None)
Quarter: 2012Q2

REPORT INFORMATION
  Report Type: 
  Country: None (occurrence: None)
  Receive Date: 20120509
  Receipt Date: 20120504
  Transmission Date: 20120825
  Serious: Yes (Hospitalization)
  Sender: FDA-Public Use
  Company Number: PHHY2012TW038567

PATIENT

DRUGS (1)
  1. EXFORGE [Suspect]
     Route: 048

REACTIONS (2)
  - HAEMATURIA [None]
  - CYSTITIS NONINFECTIVE [None]
